FAERS Safety Report 15669491 (Version 2)
Quarter: 2019Q1

REPORT INFORMATION
  Report Type: Spontaneous
  Country: JP (occurrence: JP)
  Receive Date: 20181129
  Receipt Date: 20190102
  Transmission Date: 20190417
  Serious: Yes (Other)
  Sender: FDA-Public Use
  Company Number: JP-BAUSCH-BL-2018-033253

PATIENT
  Age: 79 Year
  Sex: Male

DRUGS (2)
  1. 5-FLUOROURACIL [Suspect]
     Active Substance: FLUOROURACIL
     Indication: HYPOPHARYNGEAL CANCER STAGE II
     Dosage: 2 COURSES
     Route: 065
  2. CARBOPLATIN. [Suspect]
     Active Substance: CARBOPLATIN
     Indication: HYPOPHARYNGEAL CANCER STAGE II
     Dosage: 2 COURSES
     Route: 065

REACTIONS (4)
  - Peritonitis [Recovering/Resolving]
  - Pelvic abscess [Recovering/Resolving]
  - Pneumatosis intestinalis [Recovered/Resolved]
  - Portal venous gas [Recovered/Resolved]
